FAERS Safety Report 7535532-0 (Version None)
Quarter: 2011Q2

REPORT INFORMATION
  Report Type: 
  Country: None (occurrence: None)
  Receive Date: 20110609
  Receipt Date: 20110519
  Transmission Date: 20111010
  Serious: Yes (Hospitalization)
  Sender: FDA-Public Use
  Company Number: US-BAYER-201027947NA

PATIENT
  Sex: Female
  Weight: 60.771 kg

DRUGS (8)
  1. NSAID'S [Concomitant]
  2. YASMIN [Suspect]
     Dosage: UNK
     Dates: start: 20060411, end: 20080629
  3. YASMIN [Suspect]
     Indication: DYSMENORRHOEA
     Dosage: UNK
     Route: 048
     Dates: start: 20050614, end: 20051001
  4. RANITIDINE [Concomitant]
     Dosage: 150 MG, UNK
  5. CONTRACEPTIVES NOS [Concomitant]
  6. TOPAMAX [Concomitant]
     Indication: HEADACHE
     Dosage: UNK
     Dates: start: 20050101
  7. DROSPIRENONE AND ETHINYL ESTRADIOL [Suspect]
     Indication: DYSMENORRHOEA
     Dosage: UNK
     Dates: start: 20080729, end: 20081101
  8. SEPTRA [Concomitant]
     Indication: URINARY TRACT INFECTION
     Dosage: UNK
     Route: 048
     Dates: start: 20050919

REACTIONS (5)
  - APHAGIA [None]
  - ABDOMINAL PAIN [None]
  - VOMITING [None]
  - GALLBLADDER DISORDER [None]
  - BILIARY DYSKINESIA [None]
